FAERS Safety Report 16136867 (Version 3)
Quarter: 2019Q2

REPORT INFORMATION
  Report Type: Report from Study
  Country: US (occurrence: US)
  Receive Date: 20190329
  Receipt Date: 20190512
  Transmission Date: 20190711
  Serious: Yes (Hospitalization)
  Sender: FDA-Public Use
  Company Number: PHEH2019US013326

PATIENT
  Sex: Female
  Weight: 59 kg

DRUGS (3)
  1. ENTRESTO [Suspect]
     Active Substance: SACUBITRIL\VALSARTAN
     Indication: CARDIOMYOPATHY
     Dosage: 0.5 DF (SACUBITRIL 24MG AND VALSARTAN 26MG), BID
     Route: 048
     Dates: end: 20190309
  2. ENTRESTO [Suspect]
     Active Substance: SACUBITRIL\VALSARTAN
     Dosage: 0.5 DF (SACUBITRIL 24MG AND VALSARTAN 26MG), BID
     Route: 048
  3. LASIX [Concomitant]
     Active Substance: FUROSEMIDE
     Indication: PRODUCT USED FOR UNKNOWN INDICATION
     Dosage: UNK
     Route: 042

REACTIONS (10)
  - Prescribed underdose [Unknown]
  - Pericardial effusion [Unknown]
  - Wrong technique in product usage process [Unknown]
  - Product use in unapproved indication [Unknown]
  - Dyspnoea [Unknown]
  - Chest pain [Unknown]
  - Cardiac failure [Unknown]
  - Chest discomfort [Unknown]
  - Cardiac disorder [Unknown]
  - Oedema peripheral [Unknown]
